FAERS Safety Report 17193368 (Version 1)
Quarter: 2019Q4

REPORT INFORMATION
  Report Type: Report from Study
  Country: JP (occurrence: JP)
  Receive Date: 20191223
  Receipt Date: 20191223
  Transmission Date: 20200122
  Serious: Yes (Death, Other)
  Sender: FDA-Public Use
  Company Number: JP-JNJFOC-20191227916

PATIENT

DRUGS (1)
  1. TRABECTEDIN [Suspect]
     Active Substance: TRABECTEDIN
     Indication: SOFT TISSUE SARCOMA
     Dosage: FOR 24 HOURS
     Route: 042

REACTIONS (12)
  - Neutropenia [Unknown]
  - Hepatotoxicity [Unknown]
  - Thrombocytopenia [Unknown]
  - Febrile neutropenia [Unknown]
  - Nausea [Unknown]
  - Decreased appetite [Unknown]
  - Leukopenia [Unknown]
  - Anaemia [Unknown]
  - Vomiting [Unknown]
  - Gastrointestinal haemorrhage [Fatal]
  - Rhabdomyolysis [Unknown]
  - Blood creatine phosphokinase increased [Unknown]
